FAERS Safety Report 19606587 (Version 1)
Quarter: 2021Q3

REPORT INFORMATION
  Report Type: Spontaneous
  Country: US (occurrence: US)
  Receive Date: 20210725
  Receipt Date: 20210725
  Transmission Date: 20211014
  Serious: Yes (Other)
  Sender: FDA-Public Use
  Company Number: US-SA-2021SA244215

PATIENT
  Age: 83 Year
  Sex: Female

DRUGS (1)
  1. ZANTAC [Suspect]
     Active Substance: RANITIDINE HYDROCHLORIDE
     Indication: ABDOMINAL DISCOMFORT
     Dosage: UNK
     Dates: start: 2018, end: 2019

REACTIONS (1)
  - Hepatic cancer [Unknown]

NARRATIVE: CASE EVENT DATE: 20190120
